FAERS Safety Report 9476922 (Version 2)
Quarter: 2013Q4

REPORT INFORMATION
  Report Type: Spontaneous
  Country: US (occurrence: US)
  Receive Date: 20130826
  Receipt Date: 20131028
  Transmission Date: 20140711
  Serious: No
  Sender: FDA-Public Use
  Company Number: US-ROXANE LABORATORIES, INC.-2013-RO-01411RO

PATIENT
  Sex: Female

DRUGS (4)
  1. MONTELUKAST SODIUM [Suspect]
     Indication: ASTHMA
     Dosage: 10 MG
     Route: 048
     Dates: start: 201302, end: 201308
  2. VENTOLIN [Concomitant]
     Indication: ASTHMA
     Route: 055
  3. ADVAIR [Concomitant]
     Indication: ASTHMA
  4. SEREVENT [Concomitant]
     Indication: ASTHMA

REACTIONS (4)
  - Wheezing [Recovered/Resolved]
  - Pleuritic pain [Recovered/Resolved]
  - Drug ineffective [Unknown]
  - Product quality issue [Unknown]
